FAERS Safety Report 9120971 (Version 10)
Quarter: 2015Q3

REPORT INFORMATION
  Report Type: Spontaneous
  Country: US (occurrence: US)
  Receive Date: 20130226
  Receipt Date: 20150713
  Transmission Date: 20151125
  Serious: Yes (Hospitalization, Other)
  Sender: FDA-Public Use
  Company Number: US-009507513-1302USA011683

PATIENT
  Sex: Female
  Weight: 63.39 kg

DRUGS (4)
  1. ALENDRONATE SODIUM. [Suspect]
     Active Substance: ALENDRONATE SODIUM
     Dosage: UNK
  2. FOSAMAX [Suspect]
     Active Substance: ALENDRONATE SODIUM
     Dosage: 70 MG, QW
     Route: 048
     Dates: start: 20051206, end: 201108
  3. ALENDRONATE SODIUM. [Suspect]
     Active Substance: ALENDRONATE SODIUM
     Dosage: 70 MG, QW
     Route: 048
     Dates: start: 20080501, end: 20120109
  4. FOSAMAX [Suspect]
     Active Substance: ALENDRONATE SODIUM
     Indication: OSTEOPOROSIS
     Dosage: 35 MG, QW
     Route: 048
     Dates: start: 200308, end: 200605

REACTIONS (60)
  - Hypoacusis [Unknown]
  - Essential hypertension [Unknown]
  - Foot fracture [Unknown]
  - Osteopenia [Unknown]
  - Genital atrophy [Unknown]
  - Breast conserving surgery [Unknown]
  - Spinal pain [Unknown]
  - Fall [Unknown]
  - Drug ineffective [Unknown]
  - Eczema [Unknown]
  - Large intestine polyp [Unknown]
  - Hypercholesterolaemia [Unknown]
  - Gout [Unknown]
  - Cataract operation [Unknown]
  - Oestrogen deficiency [Unknown]
  - Fatigue [Unknown]
  - Spondylolisthesis [Unknown]
  - Pain in extremity [Unknown]
  - Joint swelling [Unknown]
  - Low turnover osteopathy [Unknown]
  - Pneumonia [Unknown]
  - Hysterectomy [Unknown]
  - Congestive cardiomyopathy [Unknown]
  - Nocturia [Unknown]
  - Salpingo-oophorectomy bilateral [Unknown]
  - Vertebral foraminal stenosis [Unknown]
  - Osteoarthritis [Unknown]
  - Neuropathy peripheral [Unknown]
  - Joint swelling [Unknown]
  - Intramedullary rod insertion [Unknown]
  - Vitamin D deficiency [Unknown]
  - Breast mass [Unknown]
  - Dry skin [Unknown]
  - Pollakiuria [Unknown]
  - Insomnia [Unknown]
  - Intervertebral disc degeneration [Unknown]
  - Lumbar spinal stenosis [Unknown]
  - Drug intolerance [Unknown]
  - Diarrhoea [Recovered/Resolved]
  - Arthralgia [Unknown]
  - Drug ineffective [Unknown]
  - Pain [Unknown]
  - Skin cancer [Unknown]
  - Femur fracture [Unknown]
  - Sciatica [Unknown]
  - Foot deformity [Unknown]
  - Cataract [Unknown]
  - Gastrointestinal disorder [Unknown]
  - Haemorrhagic anaemia [Unknown]
  - Intraductal proliferative breast lesion [Unknown]
  - Spinal pain [Unknown]
  - Chronic obstructive pulmonary disease [Not Recovered/Not Resolved]
  - Arthropathy [Unknown]
  - Mental impairment [Unknown]
  - Arthralgia [Unknown]
  - Breast disorder female [Unknown]
  - Increased tendency to bruise [Unknown]
  - Radiotherapy [Unknown]
  - Upper respiratory tract infection [Unknown]
  - Paraesthesia [Unknown]

NARRATIVE: CASE EVENT DATE: 2005
